FAERS Safety Report 13497482 (Version 1)
Quarter: 2017Q2

REPORT INFORMATION
  Report Type: Other
  Country: FR (occurrence: FR)
  Receive Date: 20170428
  Receipt Date: 20170428
  Transmission Date: 20170830
  Serious: Yes (Hospitalization)
  Sender: FDA-Public Use
  Company Number: FR-SEATTLE GENETICS-2017SGN01072

PATIENT

DRUGS (15)
  1. PANTESTONE                         /00103107/ [Concomitant]
     Active Substance: TESTOSTERONE UNDECANOATE
     Dosage: 40 MG, QD
     Route: 065
  2. MECIR [Concomitant]
     Active Substance: TAMSULOSIN HYDROCHLORIDE
     Dosage: 0.4 MG, QD
     Route: 065
  3. OROZAMUDOL [Concomitant]
     Active Substance: TRAMADOL
     Dosage: 50 MG, Q6HR
     Route: 065
  4. MONO-TILDIEM [Concomitant]
     Active Substance: DILTIAZEM HYDROCHLORIDE
     Dosage: 200 MG, QD
     Route: 065
  5. PANTOPRAZOLE SODIUM. [Concomitant]
     Active Substance: PANTOPRAZOLE SODIUM
     Dosage: 40 MG, QD
     Route: 065
  6. PARACETAMOL [Concomitant]
     Active Substance: ACETAMINOPHEN
     Dosage: 1 G, Q6HR
     Route: 065
  7. LASILIX                            /00032601/ [Concomitant]
     Active Substance: FUROSEMIDE
     Dosage: 40 MG, TID
     Route: 065
  8. ADCETRIS [Suspect]
     Active Substance: BRENTUXIMAB VEDOTIN
     Indication: MYCOSIS FUNGOIDES
     Dosage: UNK
     Route: 042
     Dates: start: 201402
  9. CALCIDOSE                          /07357001/ [Concomitant]
     Active Substance: CALCIUM CARBONATE
     Dosage: 500 MG, BID
     Route: 065
  10. FENOFIBRATE ACTAVIS [Concomitant]
     Dosage: 160 MG, QD
     Route: 065
  11. VALCHLOR [Concomitant]
     Active Substance: MECHLORETHAMINE
     Dosage: UNK, 1/WEEK
     Route: 065
     Dates: start: 201411
  12. DIFFU-K [Concomitant]
     Active Substance: POTASSIUM CHLORIDE
     Dosage: 600 MG, QD
     Route: 065
  13. TARGRETIN [Concomitant]
     Active Substance: BEXAROTENE
     Dosage: 75 MG, UNK
     Route: 065
     Dates: start: 201402
  14. LEVOTHYROX [Concomitant]
     Active Substance: LEVOTHYROXINE
     Dosage: 125 ?G, QD
     Route: 065
  15. SIMVASTATINE EG [Concomitant]
     Dosage: 40 MG, QD
     Route: 065

REACTIONS (3)
  - C-reactive protein increased [Not Recovered/Not Resolved]
  - Administration site extravasation [Recovering/Resolving]
  - Dermatitis [Recovering/Resolving]

NARRATIVE: CASE EVENT DATE: 20170330
